FAERS Safety Report 16861782 (Version 8)
Quarter: 2020Q3

REPORT INFORMATION
  Report Type: Spontaneous
  Country: US (occurrence: US)
  Receive Date: 20190927
  Receipt Date: 20200811
  Transmission Date: 20201102
  Serious: Yes (Death, Hospitalization)
  Sender: FDA-Public Use
  Company Number: US-ACTELION-A-NJ2019-196153

PATIENT
  Sex: Female
  Weight: 82.54 kg

DRUGS (5)
  1. REMODULIN [Concomitant]
     Active Substance: TREPROSTINIL
     Dosage: 5 NG/KG, PER MIN
     Dates: start: 201802, end: 20200707
  2. OPSUMIT [Suspect]
     Active Substance: MACITENTAN
     Indication: PULMONARY ARTERIAL HYPERTENSION
     Dosage: 10 MG, QD
     Route: 048
  3. TADALAFIL. [Concomitant]
     Active Substance: TADALAFIL
     Dosage: 40 MG
     Dates: start: 201907
  4. XARELTO [Concomitant]
     Active Substance: RIVAROXABAN
  5. WARFARIN [Concomitant]
     Active Substance: WARFARIN

REACTIONS (9)
  - Atrial fibrillation [Fatal]
  - Chest pain [Fatal]
  - Fluid retention [Unknown]
  - Fluid overload [Recovered/Resolved]
  - Diet noncompliance [Recovered/Resolved]
  - Mitral valve disease [Fatal]
  - Pulmonary arterial hypertension [Recovered/Resolved]
  - Condition aggravated [Unknown]
  - Cardiac arrest [Fatal]
